FAERS Safety Report 10333572 (Version 1)
Quarter: 2014Q3

REPORT INFORMATION
  Report Type: Spontaneous
  Country: PT (occurrence: PT)
  Receive Date: 20140723
  Receipt Date: 20140723
  Transmission Date: 20150326
  Serious: Yes (Other)
  Sender: FDA-Public Use
  Company Number: PT-009507513-1407PRT002664

PATIENT
  Age: 59 Year
  Sex: Female

DRUGS (10)
  1. FENTANYL. [Concomitant]
     Active Substance: FENTANYL
     Indication: ANALGESIC THERAPY
     Dosage: INTRA-SURGICALLY
     Dates: start: 20140702
  2. FENTANYL. [Concomitant]
     Active Substance: FENTANYL
     Dosage: 0.1 MG BEFORE INTUBATION
     Dates: start: 201407
  3. ROCURONIUM BROMIDE. [Suspect]
     Active Substance: ROCURONIUM BROMIDE
     Dosage: 30 MG OF ROCURONIUM (APPROXIMATELY 0.6 MG/KG) 20 MINUTES AFTER THE SUGAMMADEX ADMINISTRATION
     Dates: start: 201407
  4. BRIDION [Suspect]
     Active Substance: SUGAMMADEX
     Dosage: 200 MG, UNK
     Dates: start: 201407
  5. TRAMADOL HYDROCHLORIDE. [Concomitant]
     Active Substance: TRAMADOL HYDROCHLORIDE
     Indication: ANALGESIC THERAPY
     Dosage: 100 MG, UNK
     Route: 042
     Dates: start: 20140702
  6. PROPOFOL. [Concomitant]
     Active Substance: PROPOFOL
     Dosage: UNK
     Dates: start: 201407
  7. BRIDION [Suspect]
     Active Substance: SUGAMMADEX
     Dosage: 200 MG, UNK
     Dates: start: 20140702, end: 20140702
  8. ROCURONIUM BROMIDE. [Suspect]
     Active Substance: ROCURONIUM BROMIDE
     Indication: ANALGESIC THERAPY
     Dosage: UNK
     Dates: start: 20140702
  9. ACETAMINOPHEN. [Concomitant]
     Active Substance: ACETAMINOPHEN
     Indication: ANALGESIC THERAPY
     Dosage: 1 G, UNK
     Route: 042
     Dates: start: 20140702
  10. PROPOFOL. [Concomitant]
     Active Substance: PROPOFOL
     Indication: ANALGESIC THERAPY
     Dosage: UNK
     Dates: start: 20140702

REACTIONS (5)
  - Surgery [Unknown]
  - Therapeutic response changed [Unknown]
  - Oedema [Unknown]
  - Venous thrombosis [Unknown]
  - Spinal haematoma [Unknown]

NARRATIVE: CASE EVENT DATE: 201407
